FAERS Safety Report 7214509-9 (Version None)
Quarter: 2010Q4

REPORT INFORMATION
  Report Type: 
  Country: None (occurrence: None)
  Receive Date: 20101126
  Receipt Date: 20091005
  Transmission Date: 20110411
  Serious: Yes (Other)
  Sender: FDA-Public Use
  Company Number: WAES 0907USA04004

PATIENT
  Age: 68 Year
  Sex: Female

DRUGS (5)
  1. FOSAMAX [Suspect]
     Indication: OSTEOPOROSIS PROPHYLAXIS
     Dosage: PO
     Route: 048
     Dates: start: 19970601
  2. FOSAMAX [Suspect]
     Indication: OSTEOPOROSIS PROPHYLAXIS
     Dosage: 70 MG/WKY/PO
     Route: 048
     Dates: start: 20020101, end: 20070622
  3. FOSAMAX [Suspect]
     Indication: OSTEOSCLEROSIS
     Dosage: 70 MG/WKY/PO
     Route: 048
     Dates: start: 20020101, end: 20070622
  4. FOSINOPRIL SODIUM [Concomitant]
  5. METOPROLOL [Concomitant]

REACTIONS (19)
  - AMALGAM TATTOO [None]
  - BLOOD CHOLESTEROL INCREASED [None]
  - BREATH ODOUR [None]
  - BRUXISM [None]
  - DENTAL CARIES [None]
  - DENTAL FISTULA [None]
  - DYSGEUSIA [None]
  - GINGIVAL BLEEDING [None]
  - IMPAIRED HEALING [None]
  - LEUKOPLAKIA ORAL [None]
  - MASTICATION DISORDER [None]
  - ORAL INFECTION [None]
  - OSTEITIS [None]
  - OSTEOARTHRITIS [None]
  - OSTEOMYELITIS [None]
  - OSTEONECROSIS [None]
  - TOOTH DISORDER [None]
  - TOOTH FRACTURE [None]
  - TRISMUS [None]
